FAERS Safety Report 13029852 (Version 1)
Quarter: 2016Q4

REPORT INFORMATION
  Report Type: Spontaneous
  Country: US (occurrence: US)
  Receive Date: 20161214
  Receipt Date: 20161214
  Transmission Date: 20170207
  Serious: Yes (Life-Threatening, Hospitalization, Disabling, Other)
  Sender: FDA-Public Use
  Company Number: None

PATIENT
  Age: 51 Year
  Sex: Male
  Weight: 81 kg

DRUGS (1)
  1. MEFLOQUINE [Suspect]
     Active Substance: MEFLOQUINE

REACTIONS (4)
  - Electrocardiogram QT prolonged [None]
  - Ventricular fibrillation [None]
  - Electrocardiogram T wave abnormal [None]
  - Sinus bradycardia [None]

NARRATIVE: CASE EVENT DATE: 20130107
